FAERS Safety Report 25687567 (Version 1)
Quarter: 2025Q3

REPORT INFORMATION
  Report Type: Report from Study
  Country: US (occurrence: US)
  Receive Date: 20250817
  Receipt Date: 20250817
  Transmission Date: 20251020
  Serious: Yes (Hospitalization, Other)
  Sender: AUROBINDO
  Company Number: US-AUROBINDO-AUR-APL-2025-041926

PATIENT
  Sex: Male

DRUGS (3)
  1. LIDOCAINE [Suspect]
     Active Substance: LIDOCAINE
     Indication: Long QT syndrome
     Route: 042
  2. PROPRANOLOL [Concomitant]
     Active Substance: PROPRANOLOL HYDROCHLORIDE
     Indication: Long QT syndrome
     Route: 065
  3. MEXILETINE [Concomitant]
     Active Substance: MEXILETINE
     Indication: Long QT syndrome
     Route: 065

REACTIONS (1)
  - Seizure [Unknown]
